FAERS Safety Report 8396079-5 (Version None)
Quarter: 2012Q2

REPORT INFORMATION
  Report Type: 
  Country: None (occurrence: None)
  Receive Date: 20120530
  Receipt Date: 20120521
  Transmission Date: 20120825
  Serious: Yes (Hospitalization)
  Sender: FDA-Public Use
  Company Number: US-ROCHE-1071549

PATIENT

DRUGS (2)
  1. EPOGEN [Concomitant]
  2. SOMATROPIN [Suspect]
     Indication: PRODUCT USED FOR UNKNOWN INDICATION
     Dosage: 1 IN EVERY EVENING
     Dates: start: 20120202

REACTIONS (2)
  - MEDICAL DEVICE COMPLICATION [None]
  - WEIGHT DECREASED [None]
